FAERS Safety Report 13739443 (Version 2)
Quarter: 2017Q4

REPORT INFORMATION
  Report Type: Spontaneous
  Country: US (occurrence: US)
  Receive Date: 20170710
  Receipt Date: 20171114
  Transmission Date: 20180320
  Serious: Yes (Death)
  Sender: FDA-Public Use
  Company Number: US-LEADIANT BIOSCIENCES INC-2017STPI000513

PATIENT
  Age: 19 Year
  Sex: Male

DRUGS (3)
  1. FOLIC ACID. [Concomitant]
     Active Substance: FOLIC ACID
  2. POTASSIUM [Concomitant]
     Active Substance: POTASSIUM
  3. ADAGEN [Suspect]
     Active Substance: PEGADEMASE BOVINE
     Indication: COMBINED IMMUNODEFICIENCY
     Dosage: 375 IU, 5 DAYS A WEEK
     Route: 030
     Dates: start: 20140819

REACTIONS (1)
  - Death [Fatal]

NARRATIVE: CASE EVENT DATE: 20170623
